FAERS Safety Report 5268538-5 (Version None)
Quarter: 2007Q1

REPORT INFORMATION
  Report Type: 
  Country: None (occurrence: None)
  Receive Date: 20070315
  Receipt Date: 20070315
  Transmission Date: 20070707
  Serious: Yes (Death)
  Sender: FDA-Public Use
  Company Number: None

PATIENT
  Age: 66 Year
  Sex: Male
  Weight: 81.6475 kg

DRUGS (1)
  1. LIPITOR [Suspect]
     Indication: BLOOD CHOLESTEROL INCREASED
     Dosage: DAILY PO
     Route: 048
     Dates: start: 20030501, end: 20040701

REACTIONS (3)
  - AMYOTROPHIC LATERAL SCLEROSIS [None]
  - MUSCULAR WEAKNESS [None]
  - THROMBOSIS [None]
